FAERS Safety Report 5124808-2 (Version None)
Quarter: 2006Q4

REPORT INFORMATION
  Report Type: 
  Country: None (occurrence: None)
  Receive Date: 20061011
  Receipt Date: 20060710
  Transmission Date: 20070319
  Serious: Yes (Congenital Anomaly)
  Sender: FDA-Public Use
  Company Number: US-ROCHE-455169

PATIENT
  Age: 25 Year
  Sex: Female

DRUGS (1)
  1. ACCUTANE [Suspect]
     Indication: DRUG USE FOR UNKNOWN INDICATION
     Route: 048
     Dates: start: 19870615, end: 19870915

REACTIONS (7)
  - CAESAREAN SECTION [None]
  - CEREBRAL PALSY [None]
  - CONGENITAL ANOMALY [None]
  - DRUG EXPOSURE DURING PREGNANCY [None]
  - HEAD CIRCUMFERENCE ABNORMAL [None]
  - PREMATURE BABY [None]
  - WHEELCHAIR USER [None]
